FAERS Safety Report 4268604-7 (Version None)
Quarter: 2004Q1

REPORT INFORMATION
  Report Type: 
  Country: None (occurrence: None)
  Receive Date: 20040109
  Receipt Date: 20040109
  Transmission Date: 20041129
  Serious: Yes (Hospitalization)
  Sender: FDA-Public Use
  Company Number: None

PATIENT
  Age: 26 Year
  Sex: Female
  Weight: 53.7512 kg

DRUGS (9)
  1. FLUOROURACIL [Suspect]
     Indication: SQUAMOUS CELL CARCINOMA OF THE CERVIX
     Dosage: 1000MG/M2 TOTAL 1530 MG CONTINUOUS 24 HOUR INFUSION
     Dates: start: 20030811
  2. FLUOROURACIL [Suspect]
     Indication: SQUAMOUS CELL CARCINOMA OF THE CERVIX
     Dosage: 1000MG/M2 TOTAL 1530 MG CONTINUOUS 24 HOUR INFUSION
     Dates: start: 20030902
  3. FLUOROURACIL [Suspect]
     Indication: SQUAMOUS CELL CARCINOMA OF THE CERVIX
     Dosage: 1000MG/M2 TOTAL 1530 MG CONTINUOUS 24 HOUR INFUSION
     Dates: start: 20030929
  4. CISPLATIN [Concomitant]
  5. MANNITOL [Concomitant]
  6. CELEBREX [Concomitant]
  7. DECADRON [Concomitant]
  8. KYTRIL [Concomitant]
  9. DECADRON [Concomitant]

REACTIONS (2)
  - BRADYCARDIA [None]
  - CARDIOMYOPATHY [None]
